FAERS Safety Report 15672922 (Version 1)
Quarter: 2018Q4

REPORT INFORMATION
  Report Type: Report from Study
  Country: US (occurrence: US)
  Receive Date: 20181129
  Receipt Date: 20181129
  Transmission Date: 20190205
  Serious: Yes (Life-Threatening, Hospitalization, Other)
  Sender: FDA-Public Use
  Company Number: US-TESARO, INC-US-2018TSO02020

PATIENT
  Age: 76 Year
  Sex: Female
  Weight: 71.66 kg

DRUGS (2)
  1. ZEJULA [Suspect]
     Active Substance: NIRAPARIB
     Indication: RETROPERITONEAL CANCER
     Dosage: 100 MG, QD
     Route: 048
     Dates: start: 20180525
  2. ZEJULA [Suspect]
     Active Substance: NIRAPARIB
     Indication: MALIGNANT PERITONEAL NEOPLASM
     Dosage: 300 MG, QD
     Route: 048
     Dates: start: 20180407, end: 20180420

REACTIONS (13)
  - Thrombocytopenia [Recovered/Resolved]
  - Initial insomnia [Not Recovered/Not Resolved]
  - Product use in unapproved indication [Not Recovered/Not Resolved]
  - Thirst [Unknown]
  - Emotional distress [Unknown]
  - Contusion [Recovered/Resolved]
  - Fatigue [Recovered/Resolved]
  - White blood cell count decreased [Recovered/Resolved]
  - Hypertension [Not Recovered/Not Resolved]
  - Haemoglobin decreased [Recovered/Resolved]
  - Coagulation time prolonged [Unknown]
  - Diarrhoea [Recovered/Resolved]
  - Dizziness [Unknown]

NARRATIVE: CASE EVENT DATE: 20180417
